FAERS Safety Report 7563498-6 (Version None)
Quarter: 2011Q2

REPORT INFORMATION
  Report Type: 
  Country: None (occurrence: None)
  Receive Date: 20110615
  Receipt Date: 20110531
  Transmission Date: 20111010
  Serious: Yes (Other)
  Sender: FDA-Public Use
  Company Number: UCM201106-000018

PATIENT
  Age: 43 Year
  Sex: Male

DRUGS (2)
  1. CETIRIZINE HCL [Suspect]
     Dosage: [10001723 - ALLERGIC RHINITIS] [V.14.0]
  2. HYDROXYZINE [Suspect]
     Dosage: ORAL
     Route: 048

REACTIONS (4)
  - DRUG ERUPTION [None]
  - SKIN HYPERPIGMENTATION [None]
  - RASH ERYTHEMATOUS [None]
  - DERMATITIS BULLOUS [None]
